FAERS Safety Report 23743594 (Version 1)
Quarter: 2024Q2

REPORT INFORMATION
  Report Type: Spontaneous
  Country: US (occurrence: US)
  Receive Date: 20240415
  Receipt Date: 20240415
  Transmission Date: 20240717
  Serious: No
  Sender: FDA-Public Use
  Company Number: US-PIERREL S.P.A.-2023PIR00056

PATIENT
  Age: 54 Year
  Sex: Male

DRUGS (1)
  1. ORABLOC [Suspect]
     Active Substance: ARTICAINE HYDROCHLORIDE\EPINEPHRINE BITARTRATE
     Indication: Endodontic procedure
     Dosage: UNK
     Dates: start: 202310, end: 202310

REACTIONS (1)
  - Drug ineffective [Recovered/Resolved]

NARRATIVE: CASE EVENT DATE: 20231001
